FAERS Safety Report 8186868 (Version 2)
Quarter: 2019Q1

REPORT INFORMATION
  Report Type: Spontaneous
  Country: DE (occurrence: DE)
  Receive Date: 20111018
  Receipt Date: 20190108
  Transmission Date: 20190418
  Serious: Yes (Death)
  Sender: FDA-Public Use
  Company Number: GXKR2011DE03040

PATIENT
  Age: 65 Year
  Sex: Male

DRUGS (2)
  1. CORTISONE [Concomitant]
     Active Substance: CORTISONE\HYDROCORTISONE
     Indication: PRODUCT USED FOR UNKNOWN INDICATION
     Route: 065
  2. METHOTREXATE. [Suspect]
     Active Substance: METHOTREXATE
     Indication: RHEUMATOID ARTHRITIS
     Dosage: 10 MG, QD
     Route: 048

REACTIONS (8)
  - Bone marrow failure [Fatal]
  - Diarrhoea [Fatal]
  - Multiple organ dysfunction syndrome [Fatal]
  - Overdose [Fatal]
  - Stomatitis [Fatal]
  - Product prescribing error [Fatal]
  - Medication error [Fatal]
  - Sepsis [Fatal]
